FAERS Safety Report 18489344 (Version 1)
Quarter: 2020Q4

REPORT INFORMATION
  Report Type: Spontaneous
  Country: US (occurrence: US)
  Receive Date: 20201111
  Receipt Date: 20201111
  Transmission Date: 20210114
  Serious: No
  Sender: FDA-Public Use
  Company Number: US-HORIZON-2020HZN01046

PATIENT
  Age: 15 Year
  Sex: Female

DRUGS (6)
  1. CYCLINEX-2 [Concomitant]
  2. RAVICTI [Suspect]
     Active Substance: GLYCEROL PHENYLBUTYRATE
     Indication: UREA CYCLE DISORDER
     Dosage: 3.3G (3ML) BY MOUTH TWICE A DAY WITH FOOD
     Route: 050
  3. SINGULAIR [Concomitant]
     Active Substance: MONTELUKAST SODIUM
  4. PRO-PHREE [Concomitant]
  5. CARBAGLU [Concomitant]
     Active Substance: CARGLUMIC ACID
  6. ARGININE [Concomitant]
     Active Substance: ARGININE

REACTIONS (1)
  - Drug ineffective [Unknown]
